FAERS Safety Report 5844178-1 (Version None)
Quarter: 2008Q3

REPORT INFORMATION
  Report Type: 
  Country: None (occurrence: None)
  Receive Date: 20080813
  Receipt Date: 20080801
  Transmission Date: 20090109
  Serious: Yes (Other)
  Sender: FDA-Public Use
  Company Number: US-PFIZER INC-2008037286

PATIENT
  Sex: Female
  Weight: 58 kg

DRUGS (3)
  1. CHANTIX [Suspect]
     Indication: SMOKING CESSATION THERAPY
     Dates: start: 20080328, end: 20080401
  2. OXYCONTIN [Concomitant]
  3. PERCOCET [Concomitant]

REACTIONS (10)
  - ABNORMAL DREAMS [None]
  - ANXIETY [None]
  - CONSTIPATION [None]
  - FEELING OF BODY TEMPERATURE CHANGE [None]
  - HYPERHIDROSIS [None]
  - NERVOUSNESS [None]
  - PALPITATIONS [None]
  - PANIC ATTACK [None]
  - PHOBIA OF DRIVING [None]
  - SUICIDAL IDEATION [None]
